FAERS Safety Report 17506798 (Version 3)
Quarter: 2020Q4

REPORT INFORMATION
  Report Type: Spontaneous
  Country: DE (occurrence: DE)
  Receive Date: 20200306
  Receipt Date: 20201127
  Transmission Date: 20210113
  Serious: Yes (Disabling)
  Sender: FDA-Public Use
  Company Number: DE-TORRENT-00016895

PATIENT
  Age: 64 Year
  Sex: Female
  Weight: 65 kg

DRUGS (5)
  1. LEVOFLOXACIN. [Suspect]
     Active Substance: LEVOFLOXACIN
     Indication: SPONDYLITIS
     Dosage: 1000 MG EVERY DAYS 2 SEPARATED DOSES
     Route: 048
     Dates: start: 20190805, end: 20190910
  2. CALCIUM VERLA [Concomitant]
     Active Substance: CALCIUM
     Indication: OSTEOPENIA
     Dosage: 1200 MG EVERY DAYS 2 SEPARATED DOSES
     Dates: start: 20190809
  3. DEKRISTOL [Concomitant]
     Active Substance: CHOLECALCIFEROL
     Indication: VITAMIN D DEFICIENCY
     Dosage: 20000 IU EVERY WEEKS
     Route: 048
     Dates: start: 20190809
  4. OXYCODON [Concomitant]
     Active Substance: OXYCODONE
     Indication: POSTOPERATIVE ANALGESIA
     Dosage: 2 DF EVERY DAYS 2 SEPARATED DOSES
     Dates: start: 20190718, end: 20190831
  5. VITAMIN B12 [Concomitant]
     Active Substance: CYANOCOBALAMIN
     Indication: VITAMIN D DEFICIENCY
     Dosage: 3000 IU EVERY WEEKS 3 SEPARATED DOSES

REACTIONS (5)
  - Osteoarthritis [Not Recovered/Not Resolved]
  - Arthritis [Not Recovered/Not Resolved]
  - Muscle spasms [Not Recovered/Not Resolved]
  - Gait disturbance [Not Recovered/Not Resolved]
  - Myalgia [Not Recovered/Not Resolved]

NARRATIVE: CASE EVENT DATE: 2019
